FAERS Safety Report 21157574 (Version 1)
Quarter: 2022Q3

REPORT INFORMATION
  Report Type: Spontaneous
  Country: US (occurrence: US)
  Receive Date: 20220801
  Receipt Date: 20220801
  Transmission Date: 20221026
  Serious: No
  Sender: FDA-Public Use
  Company Number: US-PFIZER INC-202201019131

PATIENT
  Age: 60 Year
  Sex: Male

DRUGS (1)
  1. INLYTA [Suspect]
     Active Substance: AXITINIB
     Dosage: 3 MG, 2X/DAY, (TAKE 3 TABS TWICE DAILY)
     Dates: start: 20220628

REACTIONS (6)
  - Asthenia [Unknown]
  - Pain [Unknown]
  - Cough [Unknown]
  - Oropharyngeal pain [Unknown]
  - Asthenopia [Unknown]
  - Illness [Unknown]
